FAERS Safety Report 9936943 (Version 2)
Quarter: 2014Q2

REPORT INFORMATION
  Report Type: Spontaneous
  Country: US (occurrence: None)
  Receive Date: 20140115
  Receipt Date: 20140411
  Transmission Date: 20141212
  Serious: No
  Sender: FDA-Public Use
  Company Number: 2013US002613

PATIENT
  Age: 73 Year
  Sex: Female
  Weight: 59 kg

DRUGS (8)
  1. ICLUSIG [Suspect]
     Indication: ACUTE LYMPHOCYTIC LEUKAEMIA
     Route: 048
     Dates: start: 20130827
  2. VITAMIN B COMPLEX [Concomitant]
  3. VITAMIN D3 [Concomitant]
  4. NYSTATIN POWDER [Concomitant]
  5. IBUPROFEN [Concomitant]
  6. CENTRUM SILVER (ASCORBIC ACID, CALCIUM , MINERAL NOS, RETINOL, TOCOPHERYL ACETATE, VITAMIN B NOS, VITAMINS NOS, ZINC) [Concomitant]
  7. FISH OIL [Concomitant]
  8. AMITIZA (LUBIPROSTONE) [Concomitant]

REACTIONS (2)
  - Rash [None]
  - Dry skin [None]
